FAERS Safety Report 7009728 (Version 2)
Quarter: 2014Q3

REPORT INFORMATION
  Report Type: Spontaneous
  Country: US (occurrence: None)
  Receive Date: 20090526
  Receipt Date: 20140919
  Transmission Date: 20150326
  Serious: Yes (Other)
  Sender: FDA-Public Use
  Company Number: 2009S1004129

PATIENT
  Age: 69 Year
  Sex: Female
  Weight: 51 kg

DRUGS (4)
  1. ASPIRIN (ACETYLSALICYLIC ACID) [Concomitant]
     Active Substance: ASPIRIN
  2. ZESTRIL (LISINOPRIL) [Concomitant]
  3. PHOSPHO-SODA [Suspect]
     Active Substance: SODIUM PHOSPHATE, DIBASIC\SODIUM PHOSPHATE, MONOBASIC
     Indication: COLONOSCOPY
     Dosage: PO
     Route: 048
     Dates: start: 20011106
  4. OGEN (ESTROPIPATE) [Concomitant]

REACTIONS (7)
  - Renal failure [None]
  - Hyperparathyroidism secondary [None]
  - Renal failure chronic [None]
  - Renal failure acute [None]
  - Nephrogenic anaemia [None]
  - Hypercalcaemia [None]
  - Metabolic acidosis [None]
